FAERS Safety Report 7055182-2 (Version None)
Quarter: 2010Q4

REPORT INFORMATION
  Report Type: 
  Country: None (occurrence: None)
  Receive Date: 20101021
  Receipt Date: 20101012
  Transmission Date: 20110411
  Serious: Yes (Hospitalization)
  Sender: FDA-Public Use
  Company Number: TH-ASTRAZENECA-2010SE48254

PATIENT
  Sex: Female

DRUGS (2)
  1. MARCAINE [Suspect]
     Indication: SPINAL ANAESTHESIA
     Route: 037
     Dates: start: 20101001, end: 20101001
  2. MORPHINE [Concomitant]
     Dates: start: 20101001, end: 20101001

REACTIONS (1)
  - MUSCULAR WEAKNESS [None]
